FAERS Safety Report 20511626 (Version 1)
Quarter: 2022Q1

REPORT INFORMATION
  Report Type: Spontaneous
  Country: US (occurrence: US)
  Receive Date: 20220224
  Receipt Date: 20220224
  Transmission Date: 20220423
  Serious: Yes (Other)
  Sender: FDA-Public Use
  Company Number: US-AMGEN-USASP2022028558

PATIENT
  Age: 85 Year
  Sex: Female

DRUGS (1)
  1. PROLIA [Suspect]
     Active Substance: DENOSUMAB
     Indication: Osteoporosis postmenopausal
     Dosage: 60 MILLIGRAM, Q6MO
     Route: 065

REACTIONS (9)
  - Follicular lymphoma [Unknown]
  - Rheumatoid arthritis [Unknown]
  - Thrombosis [Unknown]
  - Bone loss [Unknown]
  - Atrial fibrillation [Unknown]
  - Plantar fasciitis [Unknown]
  - Gastrointestinal disorder [Unknown]
  - Synovitis [Unknown]
  - Oedema peripheral [Recovered/Resolved]
